FAERS Safety Report 17274702 (Version 1)
Quarter: 2020Q1

REPORT INFORMATION
  Report Type: Report from Study
  Country: NL (occurrence: NL)
  Receive Date: 20200115
  Receipt Date: 20200115
  Transmission Date: 20200409
  Serious: Yes (Hospitalization, Other)
  Sender: FDA-Public Use
  Company Number: NL-AMGEN-NLDNI2020005877

PATIENT
  Age: 62 Year
  Sex: Female

DRUGS (1)
  1. ETANERCEPT [Suspect]
     Active Substance: ETANERCEPT
     Indication: SPONDYLITIS
     Dosage: 50 MILLIGRAM, 1X/W
     Route: 065
     Dates: start: 20071203

REACTIONS (1)
  - Colon cancer [Recovered/Resolved]

NARRATIVE: CASE EVENT DATE: 20161129
